FAERS Safety Report 8541325 (Version 4)
Quarter: 2015Q1

REPORT INFORMATION
  Report Type: Spontaneous
  Country: US (occurrence: US)
  Receive Date: 20120502
  Receipt Date: 20150115
  Transmission Date: 20150721
  Serious: Yes (Death, Hospitalization, Other)
  Sender: FDA-Public Use
  Company Number: US-GLAXOSMITHKLINE-A0975782A

PATIENT
  Age: 91 Year
  Sex: Female
  Weight: 64.5 kg

DRUGS (15)
  1. ZINC [Concomitant]
     Active Substance: ZINC\ZINC CHLORIDE
  2. SYNTHROID [Concomitant]
     Active Substance: LEVOTHYROXINE SODIUM
  3. OXYCODONE [Concomitant]
     Active Substance: OXYCODONE
     Route: 048
     Dates: start: 20111025
  4. BORTEZOMIB [Suspect]
     Active Substance: BORTEZOMIB
     Indication: PLASMA CELL MYELOMA
     Dosage: 2 MG, 3 DF PER WEEK EVERY 28 DAYS FOR 6 MONTHS
     Route: 042
     Dates: start: 20110503, end: 20111029
  5. FERROUS SULFATE [Concomitant]
     Active Substance: FERROUS SULFATE\FERROUS SULFATE, DRIED
  6. ASPIRIN. [Concomitant]
     Active Substance: ASPIRIN
     Dates: end: 20111102
  7. TYLENOL [Concomitant]
     Active Substance: ACETAMINOPHEN
  8. CALCIUM + D [Concomitant]
     Active Substance: CALCIUM\VITAMIN D
  9. CELEBREX [Concomitant]
     Active Substance: CELECOXIB
     Dates: end: 20111102
  10. OXYCONTIN [Concomitant]
     Active Substance: OXYCODONE HYDROCHLORIDE
     Dates: end: 20111102
  11. PERCOCET [Concomitant]
     Active Substance: ACETAMINOPHEN\OXYCODONE HYDROCHLORIDE
     Dates: end: 20111102
  12. MELPHALAN [Suspect]
     Active Substance: MELPHALAN
     Indication: PLASMA CELL MYELOMA
     Dosage: 2 MGON FU 20 AUG 2014: 1 TO 4 PER DAY EVERY 28 DAYS FOR 6 MONTHS
     Route: 048
     Dates: start: 20110503, end: 20111029
  13. PROTONIX [Concomitant]
     Active Substance: PANTOPRAZOLE SODIUM
  14. LISINOPRIL. [Concomitant]
     Active Substance: LISINOPRIL
  15. DEXAMETHAZONE [Concomitant]
     Active Substance: DEXAMETHASONE

REACTIONS (27)
  - Herpes zoster [Unknown]
  - Rash vesicular [Unknown]
  - Multimorbidity [Fatal]
  - Failure to thrive [Unknown]
  - Contusion [Unknown]
  - Coagulopathy [Unknown]
  - Neoplasm malignant [Fatal]
  - Acute abdomen [Unknown]
  - Emotional distress [Unknown]
  - General physical health deterioration [Fatal]
  - Skin discolouration [Unknown]
  - Pancytopenia [Unknown]
  - Disorientation [Unknown]
  - Oedema peripheral [Recovered/Resolved]
  - Internal injury [Fatal]
  - Abdominal pain [Unknown]
  - Plasma cell myeloma [Fatal]
  - Hallucination [Unknown]
  - Dehydration [Unknown]
  - Metastasis [Unknown]
  - Urinary tract infection [Unknown]
  - Pain [Unknown]
  - Abdominal tenderness [Unknown]
  - Back pain [Unknown]
  - Thrombocytopenia [Unknown]
  - Confusional state [Unknown]
  - Hypophagia [Unknown]

NARRATIVE: CASE EVENT DATE: 20111111
